FAERS Safety Report 5424679-0 (Version None)
Quarter: 2007Q3

REPORT INFORMATION
  Report Type: 
  Country: None (occurrence: None)
  Receive Date: 20070824
  Receipt Date: 20070820
  Transmission Date: 20080115
  Serious: Yes (Other)
  Sender: FDA-Public Use
  Company Number: PHEH2007US11365

PATIENT
  Age: 78 Year
  Sex: Female

DRUGS (2)
  1. ZOMETA [Suspect]
     Indication: OSTEOPOROSIS
     Dosage: UNK, ONCE/SINGLE
     Dates: start: 20040804
  2. ZOMETA [Suspect]
     Dosage: UNK, ONCE/SINGLE
     Dates: start: 20050914

REACTIONS (2)
  - JAW DISORDER [None]
  - TOOTH LOSS [None]
